FAERS Safety Report 11515109 (Version 1)
Quarter: 2015Q3

REPORT INFORMATION
  Report Type: Spontaneous
  Country: PL (occurrence: PL)
  Receive Date: 20150916
  Receipt Date: 20150916
  Transmission Date: 20151125
  Serious: Yes (Other)
  Sender: FDA-Public Use
  Company Number: PHHY2015PL109766

PATIENT
  Sex: Female
  Weight: 57 kg

DRUGS (1)
  1. LEFLUNOMIDE. [Suspect]
     Active Substance: LEFLUNOMIDE
     Indication: RHEUMATOID ARTHRITIS
     Dosage: 20 MG, UNK
     Route: 048
     Dates: start: 201203, end: 20150617

REACTIONS (4)
  - Leukopenia [Unknown]
  - Granulocytopenia [Unknown]
  - Thrombocytopenia [Unknown]
  - Anaemia [Unknown]
